FAERS Safety Report 7806574-2 (Version None)
Quarter: 2011Q4

REPORT INFORMATION
  Report Type: 
  Country: None (occurrence: None)
  Receive Date: 20111011
  Receipt Date: 20110928
  Transmission Date: 20120403
  Serious: Yes (Other)
  Sender: FDA-Public Use
  Company Number: CA-ELI_LILLY_AND_COMPANY-CA201109008403

PATIENT
  Age: 79 Year
  Sex: Female

DRUGS (4)
  1. FORTEO [Suspect]
     Indication: OSTEOPOROSIS
     Dosage: 20 UG, QD
     Route: 058
     Dates: start: 20100819, end: 20101005
  2. FORTEO [Suspect]
     Dosage: 20 UG, QD
     Dates: start: 20101025
  3. PANTOPRAZOLE [Concomitant]
  4. VITAMIN D [Concomitant]

REACTIONS (1)
  - CROHN'S DISEASE [None]
